FAERS Safety Report 7808358-8 (Version None)
Quarter: 2011Q4

REPORT INFORMATION
  Report Type: 
  Country: None (occurrence: None)
  Receive Date: 20111007
  Receipt Date: 20110927
  Transmission Date: 20120403
  Serious: Yes (Hospitalization, Other)
  Sender: FDA-Public Use
  Company Number: 2011P1008901

PATIENT
  Age: 10 Day
  Sex: Male

DRUGS (3)
  1. PYRIMETHAMINE TAB [Suspect]
     Indication: CONGENITAL TOXOPLASMOSIS
     Dosage: 100 MG/KG;QD
  2. SULPHADIAZINE [Concomitant]
  3. LEUCOVORIN CALCIUM [Concomitant]

REACTIONS (9)
  - CONVULSION [None]
  - OVERDOSE [None]
  - DRUG ADMINISTRATION ERROR [None]
  - PARTIAL SEIZURES [None]
  - HAEMATOTOXICITY [None]
  - CHOLESTASIS [None]
  - DECREASED APPETITE [None]
  - INCORRECT DOSE ADMINISTERED [None]
  - VOMITING [None]
